FAERS Safety Report 24120401 (Version 1)
Quarter: 2024Q3

REPORT INFORMATION
  Report Type: Spontaneous
  Country: GB (occurrence: GB)
  Receive Date: 20240722
  Receipt Date: 20240722
  Transmission Date: 20241016
  Serious: Yes (Disabling, Other)
  Sender: TEVA
  Company Number: GB-MHRA-EYC 00209167

PATIENT
  Age: 69 Year
  Sex: Male
  Weight: 69.85 kg

DRUGS (5)
  1. AZITHROMYCIN [Suspect]
     Active Substance: AZITHROMYCIN
     Route: 065
  2. LANSOPRAZOLE [Suspect]
     Active Substance: LANSOPRAZOLE
     Indication: Gastrooesophageal reflux disease
     Dosage: DOSAGE TEXT: 30 MILLIGRAM, QD
     Route: 065
     Dates: start: 20190418, end: 20190517
  3. LANSOPRAZOLE [Suspect]
     Active Substance: LANSOPRAZOLE
     Indication: Gastrooesophageal reflux disease
     Dosage: DOSAGE TEXT: 30 MILLIGRAM, QD
     Route: 065
     Dates: start: 20191017
  4. LANSOPRAZOLE [Concomitant]
     Active Substance: LANSOPRAZOLE
     Indication: Gastrooesophageal reflux disease
     Dosage: EVERY MORNING
     Route: 065
     Dates: start: 20190418, end: 20190516
  5. AZITHROMYCIN [Concomitant]
     Active Substance: AZITHROMYCIN
     Dosage: DOSAGE TEXT: 1500 MICROGRAM, QD
     Route: 065
     Dates: start: 20190418, end: 20190421

REACTIONS (15)
  - Arthritis [Unknown]
  - Gastrointestinal candidiasis [Unknown]
  - Arthralgia [Recovered/Resolved with Sequelae]
  - Rheumatic fever [Unknown]
  - Pain in extremity [Recovered/Resolved with Sequelae]
  - Joint stiffness [Recovered/Resolved with Sequelae]
  - Arthralgia [Recovered/Resolved with Sequelae]
  - Symptom recurrence [Unknown]
  - Pain in extremity [Not Recovered/Not Resolved]
  - Joint stiffness [Not Recovered/Not Resolved]
  - Musculoskeletal stiffness [Not Recovered/Not Resolved]
  - Back pain [Not Recovered/Not Resolved]
  - Plantar fasciitis [Unknown]
  - Pain in extremity [Not Recovered/Not Resolved]
  - Arthralgia [Not Recovered/Not Resolved]

NARRATIVE: CASE EVENT DATE: 20190429
